FAERS Safety Report 20332645 (Version 1)
Quarter: 2022Q1

REPORT INFORMATION
  Report Type: Spontaneous
  Country: US (occurrence: US)
  Receive Date: 20220113
  Receipt Date: 20220113
  Transmission Date: 20220423
  Serious: Yes (Hospitalization)
  Sender: FDA-Public Use
  Company Number: US-CELGENE-USA-20220102896

PATIENT
  Age: 78 Year
  Sex: Female
  Weight: 56.750 kg

DRUGS (3)
  1. POMALYST [Suspect]
     Active Substance: POMALIDOMIDE
     Indication: Plasma cell myeloma
     Dosage: 4 MILLIGRAM
     Route: 048
     Dates: start: 201804
  2. POMALYST [Suspect]
     Active Substance: POMALIDOMIDE
     Indication: Gastrointestinal disorder
  3. POMALYST [Suspect]
     Active Substance: POMALIDOMIDE
     Indication: Off label use

REACTIONS (1)
  - Hypotension [Recovered/Resolved]

NARRATIVE: CASE EVENT DATE: 20211215
